FAERS Safety Report 6206520-1 (Version None)
Quarter: 2009Q2

REPORT INFORMATION
  Report Type: 
  Country: None (occurrence: None)
  Receive Date: 20090528
  Receipt Date: 20090526
  Transmission Date: 20091009
  Serious: Yes (Death)
  Sender: FDA-Public Use
  Company Number: FR-ASTRAZENECA-2009CG01013

PATIENT
  Age: 20673 Day
  Sex: Male

DRUGS (14)
  1. FOSCAVIR [Suspect]
     Indication: CYTOMEGALOVIRUS INFECTION
     Route: 042
     Dates: start: 20090306, end: 20090320
  2. CYMEVAN [Concomitant]
     Indication: CYTOMEGALOVIRUS INFECTION
     Dates: start: 20090301
  3. FUZEON [Concomitant]
  4. INTELENCE [Concomitant]
  5. ISENTRESS [Concomitant]
  6. KALETRA [Concomitant]
  7. VFEND [Concomitant]
  8. AZADOSE [Concomitant]
  9. BACTRIM DS [Concomitant]
  10. LEDERFOLINE [Concomitant]
  11. PHOSPHONEUROS [Concomitant]
  12. CACIT D3 [Concomitant]
  13. IMOVANE [Concomitant]
  14. MAGNE B6 [Concomitant]

REACTIONS (1)
  - FANCONI SYNDROME [None]
